FAERS Safety Report 7742592-0 (Version None)
Quarter: 2011Q3

REPORT INFORMATION
  Report Type: 
  Country: None (occurrence: None)
  Receive Date: 20110912
  Receipt Date: 20110902
  Transmission Date: 20111222
  Serious: Yes (Other)
  Sender: FDA-Public Use
  Company Number: PHEH2011US03201

PATIENT
  Age: 79 Year
  Sex: Female

DRUGS (15)
  1. LIDODERM [Suspect]
     Dosage: UNK UKN, UNK
  2. XANAX [Concomitant]
     Dosage: UNK UKN, UNK
  3. NEURONTIN [Suspect]
     Dosage: 600 MG, TID
     Route: 048
  4. NORTRIPTYLINE HCL [Suspect]
     Dosage: UNK UKN, UNK
  5. URSO 250 [Concomitant]
     Dosage: UNK UKN, UNK
  6. NEURONTIN [Suspect]
     Indication: NEUROPATHY PERIPHERAL
     Dosage: 300 MG, UNK
     Route: 048
     Dates: start: 20090101
  7. VICODIN [Suspect]
     Dosage: UNK UKN, UNK
  8. TOPROL-XL [Concomitant]
     Dosage: UNK UKN, UNK
  9. CYMBALTA [Suspect]
     Dosage: UNK UKN, UNK
  10. CARDURA [Concomitant]
     Dosage: UNK UKN, UNK
  11. ZESTRIL [Concomitant]
     Dosage: UNK UKN, UNK
  12. LYRICA [Suspect]
     Dosage: UNK UKN, UNK
  13. COUMADIN [Concomitant]
     Dosage: UNK UKN, UNK
  14. HYDROCHLOROTHIAZIDE [Concomitant]
     Dosage: UNK UKN, UNK
  15. TRILEPTAL [Suspect]
     Indication: NEURALGIA
     Dosage: UNK UKN, UNK

REACTIONS (12)
  - POLYNEUROPATHY [None]
  - SENSORY LOSS [None]
  - MUSCULAR WEAKNESS [None]
  - GASTROINTESTINAL DISORDER [None]
  - DRUG INEFFECTIVE [None]
  - AREFLEXIA [None]
  - CONSTIPATION [None]
  - OEDEMA PERIPHERAL [None]
  - DYSKINESIA [None]
  - POSITIVE ROMBERGISM [None]
  - SWELLING [None]
  - BLOOD PRESSURE SYSTOLIC INCREASED [None]
